FAERS Safety Report 17827109 (Version 9)
Quarter: 2024Q3

REPORT INFORMATION
  Report Type: Spontaneous
  Country: AT (occurrence: AT)
  Receive Date: 20200527
  Receipt Date: 20240712
  Transmission Date: 20241017
  Serious: Yes (Other)
  Sender: CELLTRION
  Company Number: AT-CELLTRION INC.-2020AT022577

PATIENT

DRUGS (23)
  1. HERCEPTIN [Suspect]
     Active Substance: TRASTUZUMAB
     Indication: HER2 positive breast cancer
  2. HERCEPTIN [Suspect]
     Active Substance: TRASTUZUMAB
     Indication: Breast cancer
  3. TRASTUZUMAB [Suspect]
     Active Substance: TRASTUZUMAB
     Indication: HER2 positive breast cancer
     Dosage: 330 MG EVERY 3 WEEKS (MOST RECENT DOSE PRIOR TO THE EVENT: 13/NOV/2018); SHE RECEIVED THE MOST RECEN
     Route: 042
     Dates: start: 20181113, end: 20190918
  4. TRASTUZUMAB [Suspect]
     Active Substance: TRASTUZUMAB
     Indication: Breast cancer
     Dosage: 330 MG EVERY 4 WEEKS (MOST RECENT DOSE PRIOR TO THE EVENT: 13/NOV/2018)
     Route: 042
     Dates: start: 20190918
  5. PACLITAXEL [Suspect]
     Active Substance: PACLITAXEL
     Indication: HER2 positive breast cancer
     Dosage: 199 MG WEEKLY (MOST RECENT DOSE WAS RECEIVED ON 15/MAY/2019); WEEKLY
     Route: 042
     Dates: start: 20181215, end: 20190515
  6. PACLITAXEL [Suspect]
     Active Substance: PACLITAXEL
     Indication: Breast cancer
     Dosage: 199 MG (WEEKLY; MOST RECENT DOSE WAS RECEIVED ON 15/MAY/2019)
     Route: 042
     Dates: start: 20181205, end: 20190515
  7. EXEMESTANE [Suspect]
     Active Substance: EXEMESTANE
     Indication: Breast cancer
     Dosage: 25 MG (FREQUENCY: O.D. - ONCE DAILY)
     Route: 048
     Dates: start: 20181108
  8. EXEMESTANE [Suspect]
     Active Substance: EXEMESTANE
     Indication: HER2 positive breast cancer
     Dosage: UNK
  9. PERTUZUMAB [Suspect]
     Active Substance: PERTUZUMAB
     Indication: HER2 positive breast cancer
     Dosage: 420 MG EVERY 3 WEEKS (MOST RECENT DOSE PRIOR TO THE EVENT: 13/NOV/2018)
     Route: 042
     Dates: start: 20181113, end: 20190918
  10. PERTUZUMAB [Suspect]
     Active Substance: PERTUZUMAB
     Indication: Breast cancer
     Dosage: 420 MG EVERY 3 WEEKS MOST RECENT DOSE PRIOR TO THE EVENT: 18/SEP/2019)
     Route: 042
     Dates: start: 20181113
  11. PERTUZUMAB [Suspect]
     Active Substance: PERTUZUMAB
     Dosage: 420 MG EVERY 4 WEEKS (MOST RECENT DOSE PRIOR TO THE EVENT: 13/NOV/2018)
     Route: 042
     Dates: start: 20190918, end: 20210406
  12. DENOSUMAB [Suspect]
     Active Substance: DENOSUMAB
     Indication: HER2 positive breast cancer
     Dosage: 120 MG EVERY 4 WEEKS
     Route: 058
     Dates: start: 20190104
  13. PACLITAXEL [Suspect]
     Active Substance: PACLITAXEL
     Indication: HER2 positive breast cancer
     Dosage: 199 MG 1/WEEK; 199 MG; WEEKLY
     Route: 042
     Dates: start: 20181205, end: 20190515
  14. PREGABALIN [Concomitant]
     Active Substance: PREGABALIN
     Dosage: 75MG 1/DAY ONGOING = CHECKED
     Route: 048
     Dates: start: 20190104
  15. PREGABALIN [Concomitant]
     Active Substance: PREGABALIN
     Dosage: 75MG 1/DAY ONGOING = CHECKED
     Route: 048
     Dates: start: 20211004
  16. DIAZEPAM [Concomitant]
     Active Substance: DIAZEPAM
     Dosage: 30 [DRP] 1 DAY ONGOING = CHECKED
     Route: 048
     Dates: start: 20181108
  17. OLEOVIT [Concomitant]
     Dosage: ONGOING = CHECKED
     Dates: start: 20181108
  18. PANTOPRAZOLE [Concomitant]
     Active Substance: PANTOPRAZOLE
     Dosage: 40 MG 1/DAY ONGOING = CHECKED
     Route: 048
     Dates: start: 20181108
  19. SUCRALAN [Concomitant]
     Indication: Stomatitis
     Dosage: 10 ML, 0.5/DAY
     Route: 048
     Dates: start: 20181219, end: 20190104
  20. SUCRALAN [Concomitant]
     Dosage: 10 ML, 0.5/DAY
     Route: 048
     Dates: start: 20181219, end: 20190104
  21. SUCRALAN [Concomitant]
     Dosage: 5 ML, EVERY 0.5 DAY
     Dates: start: 20181219, end: 20190104
  22. XGEVA [Concomitant]
     Active Substance: DENOSUMAB
     Dosage: 120 MG, EVERY 4 WEEKS
     Route: 058
     Dates: start: 20190104
  23. MYCOSTATIN [Concomitant]
     Active Substance: NYSTATIN
     Indication: Stomatitis
     Dosage: 5 ML
     Route: 061
     Dates: start: 20181219, end: 20190104

REACTIONS (4)
  - Polyneuropathy [Recovered/Resolved]
  - Arthralgia [Recovered/Resolved]
  - Stomatitis [Recovered/Resolved]
  - Off label use [Unknown]

NARRATIVE: CASE EVENT DATE: 20181207
